FAERS Safety Report 10495537 (Version 2)
Quarter: 2014Q4

REPORT INFORMATION
  Report Type: Report from Study
  Country: JP (occurrence: JP)
  Receive Date: 20141003
  Receipt Date: 20141024
  Transmission Date: 20150528
  Serious: Yes (Other)
  Sender: FDA-Public Use
  Company Number: JP-OTSUKA-JP-2014-17923

PATIENT

DRUGS (10)
  1. LASIX M [Concomitant]
     Active Substance: FUROSEMIDE
     Indication: OEDEMA DUE TO HEPATIC DISEASE
     Dosage: 160 MG MILLIGRAM(S), DAILY DOSE
     Route: 048
     Dates: end: 20140821
  2. NEXIUM CONTROL [Concomitant]
     Active Substance: ESOMEPRAZOLE MAGNESIUM
     Indication: PRODUCT USED FOR UNKNOWN INDICATION
     Dosage: 20 MG MILLIGRAM(S), DAILY DOSE
     Route: 048
  3. SAMSCA [Suspect]
     Active Substance: TOLVAPTAN
     Dosage: 3.75 MG MILLIGRAM(S), QAM
     Route: 048
     Dates: start: 20140822, end: 20140916
  4. AMINOLEBAN EN [Concomitant]
     Active Substance: UNSPECIFIED INGREDIENT
     Indication: PRODUCT USED FOR UNKNOWN INDICATION
     Dosage: 150 G GRAM(S), DAILY DOSE
     Route: 048
  5. FEROTYM [Concomitant]
     Active Substance: FERROUS CITRATE\SODIUM
     Indication: PRODUCT USED FOR UNKNOWN INDICATION
     Dosage: 100 MG MILLIGRAM(S), DAILY DOSE
     Route: 048
  6. LASIX M [Concomitant]
     Active Substance: FUROSEMIDE
     Dosage: 80 MG MILLIGRAM(S), DAILY DOSE
     Route: 048
     Dates: start: 20140822
  7. PORTOLAC [Concomitant]
     Active Substance: LACTITOL
     Indication: PRODUCT USED FOR UNKNOWN INDICATION
     Dosage: 6 G GRAM(S), DAILY DOSE
     Route: 048
  8. SAMSCA [Suspect]
     Active Substance: TOLVAPTAN
     Indication: OEDEMA DUE TO HEPATIC DISEASE
     Dosage: 7.5 MG MILLIGRAM(S), QAM
     Route: 048
     Dates: start: 20140813, end: 20140821
  9. SELARA [Concomitant]
     Active Substance: EPLERENONE
     Indication: OEDEMA DUE TO HEPATIC DISEASE
     Dosage: 100 MG MILLIGRAM(S), DAILY DOSE
     Route: 048
  10. URSODEOXYCHOLIC ACID [Concomitant]
     Active Substance: URSODIOL
     Indication: PRODUCT USED FOR UNKNOWN INDICATION
     Dosage: 600 MG MILLIGRAM(S), DAILY DOSE
     Route: 048

REACTIONS (3)
  - Hyperbilirubinaemia [Recovering/Resolving]
  - Dehydration [Recovering/Resolving]
  - Gastroenteritis viral [Recovered/Resolved]

NARRATIVE: CASE EVENT DATE: 20140815
